FAERS Safety Report 9246809 (Version 1)
Quarter: 2013Q2

REPORT INFORMATION
  Report Type: Spontaneous
  Country: US (occurrence: US)
  Receive Date: 20130422
  Receipt Date: 20130422
  Transmission Date: 20140414
  Serious: Yes (Life-Threatening)
  Sender: FDA-Public Use
  Company Number: US-PFIZER INC-2013119412

PATIENT
  Age: 90 Year
  Sex: Male

DRUGS (5)
  1. SILDENAFIL CITRATE [Suspect]
     Indication: PULMONARY HYPERTENSION
     Dosage: 20 MG, 3X/DAY
     Route: 065
  2. ACETYLSALICYLIC ACID [Suspect]
     Dosage: DAILY DOSE 81 MG
     Route: 065
  3. ROSUVASTATIN [Concomitant]
     Dosage: UNK
  4. TAMSULOSIN [Concomitant]
     Dosage: UNK
  5. ALBUTEROL SULFATE/IPRATROPIUM BROMIDE [Concomitant]
     Dosage: UNK

REACTIONS (2)
  - Haemoptysis [Recovered/Resolved]
  - Respiratory failure [Unknown]
